FAERS Safety Report 17622766 (Version 1)
Quarter: 2020Q2

REPORT INFORMATION
  Report Type: Spontaneous
  Country: US (occurrence: US)
  Receive Date: 20200403
  Receipt Date: 20200403
  Transmission Date: 20200713
  Serious: Yes (Death)
  Sender: FDA-Public Use
  Company Number: None

PATIENT
  Age: 79 Year
  Sex: Female

DRUGS (8)
  1. ELIQUIS TAB 5 MG [Concomitant]
  2. SILDENAFIL. [Suspect]
     Active Substance: SILDENAFIL
     Indication: PULMONARY HYPERTENSION
     Route: 048
     Dates: start: 20180204, end: 20200330
  3. LASIX TAB 80 MG [Concomitant]
  4. SPIRONOLACTONE TAB 25 MG [Concomitant]
  5. LIPITOR TAB 10 MG [Concomitant]
  6. CELEXA TAB 20 MG [Concomitant]
  7. LEVOTHYROXINE TAB 75 MCG [Concomitant]
  8. DILTIAZEM CAP 120 MG [Concomitant]

REACTIONS (1)
  - Death [None]
